FAERS Safety Report 16099415 (Version 2)
Quarter: 2019Q2

REPORT INFORMATION
  Report Type: Report from Study
  Country: TW (occurrence: TW)
  Receive Date: 20190321
  Receipt Date: 20190517
  Transmission Date: 20190711
  Serious: Yes (Hospitalization, Other)
  Sender: FDA-Public Use
  Company Number: TW-JNJFOC-20190312720

PATIENT
  Age: 70 Year
  Sex: Male

DRUGS (10)
  1. ROSUVASTIN [Concomitant]
     Active Substance: ROSUVASTATIN
     Route: 048
  2. ONGLYZA [Concomitant]
     Active Substance: SAXAGLIPTIN HYDROCHLORIDE
     Route: 048
  3. SENNAPUR [Concomitant]
     Route: 048
  4. GLIPIZIDE. [Concomitant]
     Active Substance: GLIPIZIDE
     Route: 048
  5. DARZALEX [Suspect]
     Active Substance: DARATUMUMAB
     Indication: PLASMA CELL MYELOMA
     Route: 065
     Dates: start: 20190122
  6. AMPHOTERICIN B. [Suspect]
     Active Substance: AMPHOTERICIN B
     Indication: CRYPTOCOCCOSIS
     Route: 065
  7. FLUCYTOSINE. [Suspect]
     Active Substance: FLUCYTOSINE
     Indication: DISSEMINATED CRYPTOCOCCOSIS
     Route: 065
     Dates: start: 20190310
  8. PIOGLITAZONE. [Suspect]
     Active Substance: PIOGLITAZONE
     Indication: PRODUCT USED FOR UNKNOWN INDICATION
     Route: 048
  9. DARZALEX [Suspect]
     Active Substance: DARATUMUMAB
     Indication: PLASMA CELL MYELOMA
     Route: 065
     Dates: start: 20190304
  10. FLUCONAZOLE. [Suspect]
     Active Substance: FLUCONAZOLE
     Indication: CRYPTOCOCCOSIS
     Route: 042
     Dates: start: 20190318, end: 20190415

REACTIONS (12)
  - Anaemia [Recovering/Resolving]
  - Disseminated cryptococcosis [Unknown]
  - Hypokalaemia [Recovering/Resolving]
  - Hypercalcaemia [Unknown]
  - Blood creatinine increased [Unknown]
  - Oral candidiasis [Unknown]
  - Hepatic enzyme increased [Unknown]
  - Neutropenia [Unknown]
  - Hyponatraemia [Unknown]
  - Bone marrow failure [Unknown]
  - Pneumonia [Recovering/Resolving]
  - Herpes simplex [Unknown]

NARRATIVE: CASE EVENT DATE: 201901
